FAERS Safety Report 25550781 (Version 1)
Quarter: 2025Q3

REPORT INFORMATION
  Report Type: Spontaneous
  Country: US (occurrence: US)
  Receive Date: 20250714
  Receipt Date: 20250714
  Transmission Date: 20251021
  Serious: No
  Sender: INTRA-CELLULAR THERAPIES
  Company Number: US-INTRA-CELLULAR THERAPIES, INC.-2025ICT00546

PATIENT
  Age: 32 Year
  Sex: Male

DRUGS (9)
  1. CAPLYTA [Suspect]
     Active Substance: LUMATEPERONE
     Indication: Schizophrenia
     Dosage: 42 MG, 1X/DAY
     Route: 048
     Dates: start: 20250311
  2. CAPLYTA [Suspect]
     Active Substance: LUMATEPERONE
     Indication: Bipolar I disorder
  3. CAPLYTA [Suspect]
     Active Substance: LUMATEPERONE
     Indication: Mania
  4. CAPLYTA [Suspect]
     Active Substance: LUMATEPERONE
     Indication: Schizoaffective disorder bipolar type
  5. LITHIUM [Concomitant]
     Active Substance: LITHIUM
     Dosage: 450 MG, 2X/DAY (AM AND PM)
     Dates: start: 20250321, end: 20250328
  6. LITHIUM [Concomitant]
     Active Substance: LITHIUM
     Dosage: 300 MG, 1X/DAY
     Dates: start: 20250329, end: 20250329
  7. LITHIUM [Concomitant]
     Active Substance: LITHIUM
     Dosage: 300 MG, 2X/DAY (AM AND PM)
     Dates: start: 20250330
  8. CLOZAPINE [Concomitant]
     Active Substance: CLOZAPINE
  9. UNSPECIFIED INGREDIENT [Concomitant]
     Active Substance: UNSPECIFIED INGREDIENT

REACTIONS (1)
  - Drug ineffective [Not Recovered/Not Resolved]

NARRATIVE: CASE EVENT DATE: 20250311
